FAERS Safety Report 4444066-1 (Version None)
Quarter: 2004Q3

REPORT INFORMATION
  Report Type: 
  Country: None (occurrence: None)
  Receive Date: 20040729
  Receipt Date: 20040202
  Transmission Date: 20050211
  Serious: Yes (Death)
  Sender: FDA-Public Use
  Company Number: US-JNJFOC-20031203138

PATIENT
  Age: 39 Year
  Sex: Male
  Weight: 98 kg

DRUGS (2)
  1. RISPERDAL [Suspect]
     Indication: DEPRESSION
     Dosage: 2 MG 1 IN 1 DAY ORAL
     Route: 048
     Dates: start: 20030429
  2. CELEXA [Concomitant]

REACTIONS (1)
  - COMPLETED SUICIDE [None]
